FAERS Safety Report 4873375-7 (Version None)
Quarter: 2005Q4

REPORT INFORMATION
  Report Type: 
  Country: None (occurrence: None)
  Receive Date: 20051201
  Receipt Date: 20050708
  Transmission Date: 20060501
  Serious: No
  Sender: FDA-Public Use
  Company Number: 2005PV000343

PATIENT
  Age: 59 Year
  Sex: Female
  Weight: 81.6475 kg

DRUGS (9)
  1. BYETTA [Suspect]
     Indication: DIABETES MELLITUS NON-INSULIN-DEPENDENT
     Dosage: 5 UG; BID; SC
     Route: 058
     Dates: start: 20050628
  2. VITAMIN D [Concomitant]
  3. DIOVAN HCT [Concomitant]
  4. ESTRADIOL INJ [Concomitant]
  5. AVANDAMET [Concomitant]
  6. CAYENNE [Concomitant]
  7. LOVASTATIN [Concomitant]
  8. AVANDIA [Concomitant]
  9. DIOVANE [Concomitant]

REACTIONS (9)
  - BLOOD GLUCOSE INCREASED [None]
  - DECREASED APPETITE [None]
  - DIARRHOEA [None]
  - ERUCTATION [None]
  - FAECES HARD [None]
  - INJECTION SITE HAEMORRHAGE [None]
  - NAUSEA [None]
  - STOMACH DISCOMFORT [None]
  - VOMITING [None]
